FAERS Safety Report 10172462 (Version 2)
Quarter: 2014Q2

REPORT INFORMATION
  Report Type: Spontaneous
  Country: JP (occurrence: JP)
  Receive Date: 20140515
  Receipt Date: 20140515
  Transmission Date: 20141212
  Serious: Yes (Hospitalization)
  Sender: FDA-Public Use
  Company Number: JP-BAYER-2014-055716

PATIENT
  Age: 78 Year
  Sex: Male
  Weight: 58.5 kg

DRUGS (8)
  1. XARELTO [Suspect]
     Indication: ATRIAL FIBRILLATION
     Dosage: 15 MG, OM
     Route: 048
     Dates: start: 20131101, end: 20140411
  2. XARELTO [Interacting]
     Indication: CEREBROVASCULAR ACCIDENT PROPHYLAXIS
  3. BAYASPIRIN [Interacting]
     Dosage: DAILY DOSE 100 MG
     Route: 048
     Dates: end: 20140411
  4. SUNRYTHM [Concomitant]
     Dosage: 25 MG, BID
     Route: 048
  5. AVAPRO [Concomitant]
     Dosage: 100 MG, OM
     Route: 048
  6. PROTECADIN [Concomitant]
     Dosage: 10 MG, OM
     Route: 048
  7. LOXONIN [Concomitant]
     Indication: CHEST PAIN
     Dosage: 60 MG, PRN
     Route: 048
     Dates: start: 20140408
  8. HACHIMIJIO-GAN [Concomitant]
     Dosage: 1 DF, BID
     Route: 048

REACTIONS (2)
  - Haemorrhage subcutaneous [Recovering/Resolving]
  - Drug interaction [None]
